FAERS Safety Report 16805712 (Version 1)
Quarter: 2019Q3

REPORT INFORMATION
  Report Type: Spontaneous
  Country: US (occurrence: US)
  Receive Date: 20190724
  Receipt Date: 20190724
  Transmission Date: 20191005
  Serious: Yes (Disabling)
  Sender: FDA-Public Use
  Company Number: None

PATIENT
  Age: 81 Year
  Sex: Female
  Weight: 56.7 kg

DRUGS (1)
  1. CIPROFLOXACIN HCL 500MG TAB [Suspect]
     Active Substance: CIPROFLOXACIN
     Indication: COMPLICATION ASSOCIATED WITH DEVICE
     Route: 048
     Dates: start: 20190426, end: 20190505

REACTIONS (2)
  - Pain in extremity [None]
  - Groin pain [None]

NARRATIVE: CASE EVENT DATE: 20190428
